FAERS Safety Report 14688786 (Version 4)
Quarter: 2018Q4

REPORT INFORMATION
  Report Type: Spontaneous
  Country: JP (occurrence: JP)
  Receive Date: 20180328
  Receipt Date: 20181023
  Transmission Date: 20190204
  Serious: Yes (Hospitalization, Other)
  Sender: FDA-Public Use
  Company Number: JP-VIIV HEALTHCARE LIMITED-JP2018JPN024902

PATIENT
  Age: 5 Decade
  Sex: Male

DRUGS (6)
  1. EPIVIR [Suspect]
     Active Substance: LAMIVUDINE
     Indication: HIV INFECTION
     Dosage: 25 MG, QD
     Route: 048
     Dates: start: 2004, end: 200805
  2. FOSCARNET SODIUM HYDRATE [Suspect]
     Active Substance: FOSCARNET SODIUM
     Dosage: UNK
     Route: 042
  3. ZIAGEN [Concomitant]
     Active Substance: ABACAVIR SULFATE
     Indication: HIV INFECTION
     Dosage: 600 MG, QD
  4. ZERIT [Concomitant]
     Active Substance: STAVUDINE
     Indication: HIV INFECTION
     Dosage: UNK
     Dates: start: 2004, end: 200805
  5. EPZICOM [Suspect]
     Active Substance: ABACAVIR SULFATE\LAMIVUDINE
     Indication: HIV INFECTION
     Dosage: UNK
     Route: 048
     Dates: start: 200805
  6. STOCRIN [Concomitant]
     Active Substance: EFAVIRENZ
     Indication: HIV INFECTION
     Dosage: 600 MG, QD
     Dates: start: 2004

REACTIONS (9)
  - Arteriosclerosis [Unknown]
  - Renal impairment [Unknown]
  - Renal atrophy [Unknown]
  - Diabetes mellitus [Recovering/Resolving]
  - Lipids abnormal [Unknown]
  - Glucose tolerance impaired [Unknown]
  - Dialysis [Unknown]
  - Diabetic nephropathy [Not Recovered/Not Resolved]
  - Hypertension [Unknown]

NARRATIVE: CASE EVENT DATE: 2004
